FAERS Safety Report 6855966-7 (Version None)
Quarter: 2010Q3

REPORT INFORMATION
  Report Type: 
  Country: None (occurrence: None)
  Receive Date: 20100716
  Receipt Date: 20100716
  Transmission Date: 20110219
  Serious: Yes (Other)
  Sender: FDA-Public Use
  Company Number: None

PATIENT
  Sex: Male
  Weight: 140.6151 kg

DRUGS (3)
  1. ACTOS [Suspect]
     Indication: DIABETES MELLITUS
     Dosage: 30 MG 1 PER DAY
     Dates: start: 20100301
  2. ACTOS [Suspect]
     Indication: DIABETES MELLITUS
     Dosage: 30 MG 1 PER DAY
     Dates: start: 20100401
  3. ACTOS [Suspect]
     Indication: DIABETES MELLITUS
     Dosage: 30 MG 1 PER DAY
     Dates: start: 20100501

REACTIONS (3)
  - BLOOD GLUCOSE DECREASED [None]
  - FLUID RETENTION [None]
  - WEIGHT INCREASED [None]
